FAERS Safety Report 6232271-3 (Version None)
Quarter: 2009Q2

REPORT INFORMATION
  Report Type: 
  Country: None (occurrence: None)
  Receive Date: 20090617
  Receipt Date: 20090608
  Transmission Date: 20091009
  Serious: Yes (Hospitalization, Other)
  Sender: FDA-Public Use
  Company Number: CA-JNJFOC-20090502764

PATIENT
  Age: 44 Year
  Sex: Male

DRUGS (14)
  1. REMICADE [Suspect]
     Dosage: INTERVAL DECREASED TO EVERY 6 WEEKS ON 13-OCT-2007
     Route: 042
  2. REMICADE [Suspect]
     Indication: PSORIASIS
     Route: 042
  3. NAPROSYN [Concomitant]
  4. TYLENOL W/ CODEINE NO. 3 [Concomitant]
  5. OXYCODONE [Concomitant]
  6. CLONAZEPAM [Concomitant]
  7. COLACE [Concomitant]
  8. PERIOTE [Concomitant]
  9. TRIACODYL [Concomitant]
  10. MIRTAZAPINE [Concomitant]
  11. BISACODYL [Concomitant]
  12. METHOTREXATE [Concomitant]
  13. METHOTREXATE [Concomitant]
     Dosage: MIDYEAR
  14. METHOTREXATE [Concomitant]
     Indication: PSORIASIS

REACTIONS (3)
  - ADVERSE EVENT [None]
  - HODGKIN'S DISEASE [None]
  - PSORIASIS [None]
